FAERS Safety Report 9761097 (Version 1)
Quarter: 2013Q4

REPORT INFORMATION
  Report Type: Spontaneous
  Country: US (occurrence: US)
  Receive Date: 20131216
  Receipt Date: 20131216
  Transmission Date: 20140711
  Serious: No
  Sender: FDA-Public Use
  Company Number: US-BIOGENIDEC-2013BI104903

PATIENT
  Age: 55 Year
  Sex: Female

DRUGS (10)
  1. TECFIDERA [Suspect]
     Indication: MULTIPLE SCLEROSIS
     Route: 048
     Dates: start: 20130926
  2. TECFIDERA [Suspect]
     Indication: MULTIPLE SCLEROSIS
     Route: 048
     Dates: start: 2013
  3. ALBUTEROL SULFATE [Concomitant]
  4. BACLOFEN [Concomitant]
  5. BLACK COHOSH [Concomitant]
  6. CALCIUM CARBONATE [Concomitant]
  7. LORATADINE [Concomitant]
  8. VITAMIN B COMPLEX [Concomitant]
  9. VITAMIN C [Concomitant]
  10. VITAMIN D [Concomitant]

REACTIONS (5)
  - Somnolence [Unknown]
  - Fatigue [Unknown]
  - Hypersomnia [Unknown]
  - Nausea [Unknown]
  - Rash [Unknown]
